FAERS Safety Report 6936689-2 (Version None)
Quarter: 2010Q3

REPORT INFORMATION
  Report Type: 
  Country: None (occurrence: None)
  Receive Date: 20100823
  Receipt Date: 20100813
  Transmission Date: 20110219
  Serious: Yes (Other)
  Sender: FDA-Public Use
  Company Number: US-AMGEN-QUU429614

PATIENT
  Sex: Female
  Weight: 95 kg

DRUGS (2)
  1. NPLATE [Suspect]
     Indication: IDIOPATHIC THROMBOCYTOPENIC PURPURA
     Dates: start: 20090831, end: 20091110
  2. IMMU-G [Concomitant]
     Dates: start: 20090729

REACTIONS (2)
  - KNEE ARTHROPLASTY [None]
  - PLATELET COUNT DECREASED [None]
